FAERS Safety Report 12661134 (Version 2)
Quarter: 2016Q3

REPORT INFORMATION
  Report Type: Spontaneous
  Country: US (occurrence: US)
  Receive Date: 20160817
  Receipt Date: 20160901
  Transmission Date: 20161109
  Serious: No
  Sender: FDA-Public Use
  Company Number: US-RELYPSA-RLY2016000636

PATIENT
  Age: 58 Year
  Sex: Female

DRUGS (22)
  1. VELTASSA [Suspect]
     Active Substance: PATIROMER
     Indication: HYPERKALAEMIA
     Dosage: 8.4 G, QD
     Route: 048
     Dates: start: 20160420
  2. LEVOFLOXACIN. [Concomitant]
     Active Substance: LEVOFLOXACIN
  3. ONDANSETRON HCL [Concomitant]
     Active Substance: ONDANSETRON HYDROCHLORIDE
  4. CALCITRIOL. [Concomitant]
     Active Substance: CALCITRIOL
  5. CARVEDILOL. [Concomitant]
     Active Substance: CARVEDILOL
  6. COLACE [Concomitant]
     Active Substance: DOCUSATE SODIUM
  7. LACTULOSE. [Concomitant]
     Active Substance: LACTULOSE
  8. NIFEDIPINE. [Concomitant]
     Active Substance: NIFEDIPINE
  9. VITAMIN D                          /00107901/ [Concomitant]
     Active Substance: ERGOCALCIFEROL
  10. ASPIRIN                            /00002701/ [Concomitant]
     Active Substance: ASPIRIN
  11. RENVELA [Concomitant]
     Active Substance: SEVELAMER CARBONATE
  12. SENNA                              /00142201/ [Concomitant]
     Active Substance: SENNA LEAF
  13. EPOGEN [Concomitant]
     Active Substance: ERYTHROPOIETIN
  14. OMEPRAZOLE. [Concomitant]
     Active Substance: OMEPRAZOLE
  15. CLONIDINE HCL [Concomitant]
     Active Substance: CLONIDINE HYDROCHLORIDE
  16. CRESTOR [Concomitant]
     Active Substance: ROSUVASTATIN CALCIUM
  17. LANTUS [Concomitant]
     Active Substance: INSULIN GLARGINE
  18. MIRALAX [Concomitant]
     Active Substance: POLYETHYLENE GLYCOL 3350
  19. VENLAFAXINE HCL [Concomitant]
     Active Substance: VENLAFAXINE HYDROCHLORIDE
  20. VENOFER [Concomitant]
     Active Substance: IRON SUCROSE
  21. GABAPENTIN. [Concomitant]
     Active Substance: GABAPENTIN
  22. NEPHRO-VITE                        /01801401/ [Concomitant]

REACTIONS (3)
  - Pruritus [None]
  - Urticaria [Unknown]
  - Alopecia [Unknown]

NARRATIVE: CASE EVENT DATE: 20160425
